FAERS Safety Report 13721913 (Version 2)
Quarter: 2017Q4

REPORT INFORMATION
  Report Type: Spontaneous
  Country: RU (occurrence: RU)
  Receive Date: 20170706
  Receipt Date: 20171004
  Transmission Date: 20180320
  Serious: Yes (Hospitalization, Other)
  Sender: FDA-Public Use
  Company Number: RU-ABBVIE-17P-251-2027566-00

PATIENT

DRUGS (1)
  1. KLACID [Suspect]
     Active Substance: CLARITHROMYCIN
     Indication: LUNG INFECTION
     Dosage: SUSPENSION
     Route: 065

REACTIONS (12)
  - Hypersensitivity [Recovered/Resolved]
  - Cyanosis [Recovered/Resolved]
  - Abdominal pain [Recovered/Resolved]
  - Somnolence [Recovered/Resolved]
  - Vomiting [Recovered/Resolved]
  - Sluggishness [Recovered/Resolved]
  - Altered state of consciousness [Recovered/Resolved]
  - Tremor [Recovered/Resolved]
  - Body temperature increased [Recovered/Resolved]
  - Peripheral coldness [Recovered/Resolved]
  - Anaphylactic reaction [Recovered/Resolved]
  - Skin reaction [Recovered/Resolved]
